FAERS Safety Report 23244275 (Version 3)
Quarter: 2024Q1

REPORT INFORMATION
  Report Type: Spontaneous
  Country: US (occurrence: US)
  Receive Date: 20231130
  Receipt Date: 20240223
  Transmission Date: 20240410
  Serious: Yes (Hospitalization)
  Sender: FDA-Public Use
  Company Number: US-SAREPTA THERAPEUTICS INC.-SRP2023-003990

PATIENT
  Age: 19 Year
  Sex: Male
  Weight: 88.44 kg

DRUGS (15)
  1. AMONDYS 45 [Suspect]
     Active Substance: CASIMERSEN
     Indication: Duchenne muscular dystrophy
     Dosage: 2600 MILLIGRAM, WEEKLY
     Route: 042
     Dates: start: 20220929, end: 20231026
  2. AMONDYS 45 [Suspect]
     Active Substance: CASIMERSEN
     Dosage: 2600 MILLIGRAM, WEEKLY
     Route: 042
     Dates: start: 20231124
  3. CARVEDILOL [Concomitant]
     Active Substance: CARVEDILOL
     Indication: Cardiac dysfunction
     Dosage: 3.125 MILLIGRAM BID WITH 12.5 TABLET FOR A TOTAL OF 15.625 MG
     Route: 048
     Dates: start: 20220207
  4. CARVEDILOL [Concomitant]
     Active Substance: CARVEDILOL
     Indication: Duchenne muscular dystrophy
     Dosage: 12.5 MILLIGRAM, BID WITH 3.125 FOR A TOTAL OF 15.625 MG
     Route: 048
     Dates: start: 20220207
  5. CARVEDILOL [Concomitant]
     Active Substance: CARVEDILOL
     Indication: Arrhythmia
  6. NAPROXEN [Concomitant]
     Active Substance: NAPROXEN
     Indication: Product used for unknown indication
     Dosage: 250 MILLIGRAM, NO STRENGTH GIVEN
     Route: 048
     Dates: start: 20220207
  7. LISINOPRIL [Concomitant]
     Active Substance: LISINOPRIL
     Indication: Cardiac dysfunction
     Dosage: 10 MILLIGRAM, QD
     Route: 048
     Dates: start: 20220207
  8. LISINOPRIL [Concomitant]
     Active Substance: LISINOPRIL
     Indication: Duchenne muscular dystrophy
  9. LISINOPRIL [Concomitant]
     Active Substance: LISINOPRIL
     Indication: Arrhythmia
  10. ZOMETA [Concomitant]
     Active Substance: ZOLEDRONIC ACID
     Indication: Osteoporosis
     Dosage: 4 MILLIGRAM EVERY 6 MONTHS
     Route: 042
     Dates: start: 20220207
  11. ZOMETA [Concomitant]
     Active Substance: ZOLEDRONIC ACID
     Indication: Steroid therapy
  12. OMEPRAZOLE [Concomitant]
     Active Substance: OMEPRAZOLE
     Indication: Product used for unknown indication
     Dosage: 20 MILLIGRAM, CAPSULE DELAYED
     Route: 048
     Dates: start: 20220207
  13. CHOLECALCIFEROL [Concomitant]
     Active Substance: CHOLECALCIFEROL
     Indication: Product used for unknown indication
     Dosage: UNK
     Route: 048
     Dates: start: 20220207
  14. EMFLAZA [Concomitant]
     Active Substance: DEFLAZACORT
     Indication: Duchenne muscular dystrophy
     Dosage: 6 MILLIGRAM, QD
     Route: 048
     Dates: start: 20220207
  15. IBUPROFEN [Concomitant]
     Active Substance: IBUPROFEN
     Indication: Product used for unknown indication
     Dosage: 400 MILLIGRAM, PRN
     Route: 048
     Dates: start: 20220207

REACTIONS (1)
  - Pneumonia bacterial [Recovered/Resolved]

NARRATIVE: CASE EVENT DATE: 20231019
